FAERS Safety Report 9535206 (Version 1)
Quarter: 2013Q3

REPORT INFORMATION
  Report Type: Spontaneous
  Country: US (occurrence: US)
  Receive Date: 20130918
  Receipt Date: 20130918
  Transmission Date: 20140515
  Serious: No
  Sender: FDA-Public Use
  Company Number: US-PURDUE-USA-2012-0088770

PATIENT
  Sex: Female

DRUGS (2)
  1. INTERMEZZO [Suspect]
     Indication: INSOMNIA
     Dosage: 3.5 MG, PM
  2. AMBIEN [Concomitant]
     Indication: INSOMNIA
     Dosage: UNK, PM

REACTIONS (1)
  - Incorrect dose administered [Unknown]
